FAERS Safety Report 11067568 (Version 1)
Quarter: 2015Q2

REPORT INFORMATION
  Report Type: Spontaneous
  Country: US (occurrence: US)
  Receive Date: 20150427
  Receipt Date: 20150427
  Transmission Date: 20150821
  Serious: No
  Sender: FDA-Public Use
  Company Number: US-TEVA-516494USA

PATIENT
  Age: 76 Year
  Sex: Male

DRUGS (2)
  1. COREG [Concomitant]
     Active Substance: CARVEDILOL
     Route: 065
  2. BUMETANIDE. [Suspect]
     Active Substance: BUMETANIDE
     Dosage: 1/2 TAB

REACTIONS (4)
  - Burning sensation [Unknown]
  - Urinary hesitation [Unknown]
  - Sleep disorder [Unknown]
  - Pain [Unknown]

NARRATIVE: CASE EVENT DATE: 2014
